FAERS Safety Report 5332166-3 (Version None)
Quarter: 2007Q2

REPORT INFORMATION
  Report Type: 
  Country: None (occurrence: None)
  Receive Date: 20070521
  Receipt Date: 20070507
  Transmission Date: 20071010
  Serious: Yes (Hospitalization)
  Sender: FDA-Public Use
  Company Number: 100#03#2007-01594

PATIENT
  Age: 55 Year

DRUGS (10)
  1. TRAMADOL HCL [Suspect]
     Indication: PAIN
     Dosage: 100 MG ( 4/ 1DAYS)
     Route: 048
     Dates: start: 20070320, end: 20070329
  2. LINEZOLID [Suspect]
     Indication: ENTEROCOCCAL INFECTION
     Dosage: 600 MG (2/ 1DAYS)
     Route: 042
     Dates: start: 20070324, end: 20070329
  3. LINEZOLID [Suspect]
     Indication: PATHOGEN RESISTANCE
     Dosage: 600 MG (2/ 1DAYS)
     Route: 042
     Dates: start: 20070324, end: 20070329
  4. TACROLIMUS [Suspect]
     Indication: IMMUNOSUPPRESSION
     Dosage: 3 MG (2/ 1DAYS)
     Route: 048
     Dates: start: 20070303, end: 20070329
  5. AZATHIOPRINE [Concomitant]
  6. FLUCONAZOLE [Concomitant]
  7. MEROPENEM [Concomitant]
  8. PREDNISOLONE [Concomitant]
  9. RANITIDINE [Concomitant]
  10. VANCOMYCIN HCL [Concomitant]

REACTIONS (4)
  - BLOOD MAGNESIUM DECREASED [None]
  - ENTEROCOCCAL INFECTION [None]
  - GRAND MAL CONVULSION [None]
  - PATHOGEN RESISTANCE [None]
